FAERS Safety Report 5679673-1 (Version None)
Quarter: 2008Q1

REPORT INFORMATION
  Report Type: 
  Country: None (occurrence: None)
  Receive Date: 20080320
  Receipt Date: 20080306
  Transmission Date: 20080703
  Serious: Yes (Hospitalization)
  Sender: FDA-Public Use
  Company Number: 230067J08BRA

PATIENT
  Age: 53 Year
  Sex: Female

DRUGS (1)
  1. REBIF [Suspect]
     Dosage: 44 MCG,  3 IN 1 WEEKS
     Dates: start: 20020701

REACTIONS (3)
  - DIABETES MELLITUS [None]
  - EMPHYSEMA [None]
  - MYOCARDIAL INFARCTION [None]
